FAERS Safety Report 7647904-4 (Version None)
Quarter: 2011Q3

REPORT INFORMATION
  Report Type: 
  Country: None (occurrence: None)
  Receive Date: 20110726
  Receipt Date: 20110713
  Transmission Date: 20111222
  Serious: Yes (Death, Life-Threatening, Hospitalization, Other)
  Sender: FDA-Public Use
  Company Number: 2011EN000060

PATIENT
  Age: 78 Year
  Sex: Male

DRUGS (17)
  1. TRIATEC /00885601/ [Concomitant]
  2. CUBICIN [Concomitant]
  3. DEXTROSE W/POTASSIUM CHLORIDE AND NACL [Concomitant]
  4. ABELCET [Suspect]
     Indication: FEBRILE NEUTROPENIA
     Dosage: 105 MG;X1;IV
     Route: 042
     Dates: start: 20110216, end: 20110216
  5. MEROPENEM [Concomitant]
  6. TIGECYCLINE [Concomitant]
  7. NOXAFIL [Concomitant]
  8. ATACAND [Concomitant]
  9. VANCOMYCIN [Concomitant]
  10. DALACIN /00166002/ [Concomitant]
  11. SPIRONOLACTONE [Concomitant]
  12. CYTARABINE [Concomitant]
  13. COMYCIN [Concomitant]
  14. MITOXANTRONE [Concomitant]
  15. LOPRESSOR [Concomitant]
  16. PIPERACILLIN [Concomitant]
  17. AMIKACIN [Concomitant]

REACTIONS (4)
  - ILEUS PARALYTIC [None]
  - HYPOKALAEMIA [None]
  - ACUTE MYOCARDIAL INFARCTION [None]
  - ACUTE PULMONARY OEDEMA [None]
